FAERS Safety Report 5793262-X (Version None)
Quarter: 2008Q2

REPORT INFORMATION
  Report Type: 
  Country: None (occurrence: None)
  Receive Date: 20080626
  Receipt Date: 20080626
  Transmission Date: 20081010
  Serious: Yes (Life-Threatening, Hospitalization)
  Sender: FDA-Public Use
  Company Number: None

PATIENT
  Age: 83 Year
  Sex: Female
  Weight: 101 kg

DRUGS (16)
  1. ROCEPHIN [Suspect]
     Indication: URINARY TRACT INFECTION
     Dosage: 1 GRAM Q 24H X 5 DAYS IV
     Route: 042
     Dates: start: 20070820, end: 20070820
  2. DALTEPARIN SODIUM [Concomitant]
  3. TETRACYCLINE [Concomitant]
  4. PANTOPRAZOLE SODIUM [Concomitant]
  5. CITALOPRAM HYDROBROMIDE [Concomitant]
  6. SODIUM CHLORIDE 0.9% [Concomitant]
  7. FENTANYL CITRATE [Concomitant]
  8. INSULIN LISPRO [Concomitant]
  9. NPH ILETIN II [Concomitant]
  10. ACETAMINOPHEN AND HYDROCODONE BITARTRATE [Concomitant]
  11. WARFARIN SODIUM [Concomitant]
  12. METOPROLOL SUCCINATE [Concomitant]
  13. FERROUS SULFATE TAB [Concomitant]
  14. CALCIUM CARBONATE [Concomitant]
  15. GABAPENTIN [Concomitant]
  16. LEVOTHYROXINE SODIUM [Concomitant]

REACTIONS (2)
  - HAEMOGLOBIN DECREASED [None]
  - STEVENS-JOHNSON SYNDROME [None]
